FAERS Safety Report 24390655 (Version 4)
Quarter: 2025Q1

REPORT INFORMATION
  Report Type: Spontaneous
  Country: FR (occurrence: FR)
  Receive Date: 20241003
  Receipt Date: 20250206
  Transmission Date: 20250409
  Serious: Yes (Death, Congenital Anomaly, Other)
  Sender: CELLTRION
  Company Number: None

PATIENT

DRUGS (3)
  1. TRASTUZUMAB [Suspect]
     Active Substance: TRASTUZUMAB
     Indication: Breast cancer
     Route: 064
     Dates: start: 2020
  2. TUCATINIB [Suspect]
     Active Substance: TUCATINIB
     Indication: Breast cancer
     Route: 064
     Dates: start: 2020
  3. CAPECITABINE [Suspect]
     Active Substance: CAPECITABINE
     Indication: Breast cancer
     Route: 064
     Dates: start: 2020

REACTIONS (10)
  - Congenital pulmonary airway malformation [Fatal]
  - Hypertelorism [Fatal]
  - Dysmorphism [Fatal]
  - Polydactyly [Fatal]
  - Ear malformation [Fatal]
  - Nose deformity [Fatal]
  - Abortion induced [Fatal]
  - Foetal exposure during pregnancy [Unknown]
  - Foetal exposure during pregnancy [Recovered/Resolved]
  - Foetal exposure during pregnancy [Unknown]
